FAERS Safety Report 15677927 (Version 1)
Quarter: 2018Q4

REPORT INFORMATION
  Report Type: Spontaneous
  Country: US (occurrence: US)
  Receive Date: 20181130
  Receipt Date: 20181130
  Transmission Date: 20190205
  Serious: Yes (Other)
  Sender: FDA-Public Use
  Company Number: US-GILEAD-2018-0377589

PATIENT
  Age: 45 Year
  Sex: Female

DRUGS (2)
  1. LOMTROGEN [Concomitant]
     Indication: AFFECTIVE DISORDER
     Dosage: UNK
     Dates: end: 201807
  2. BIKTARVY [Suspect]
     Active Substance: BICTEGRAVIR SODIUM\EMTRICITABINE\TENOFOVIR ALAFENAMIDE FUMARATE
     Indication: HIV INFECTION
     Route: 065

REACTIONS (4)
  - Hallucination, auditory [Recovered/Resolved]
  - Therapeutic response unexpected [Not Recovered/Not Resolved]
  - Schizoaffective disorder [Recovering/Resolving]
  - Post-traumatic stress disorder [Unknown]
